FAERS Safety Report 8717254 (Version 4)
Quarter: 2013Q1

REPORT INFORMATION
  Report Type: Spontaneous
  Country: US (occurrence: None)
  Receive Date: 20120724
  Receipt Date: 20130214
  Transmission Date: 20140127
  Serious: Yes (Disabling, Other)
  Sender: FDA-Public Use
  Company Number: ACO_31156_2012

PATIENT
  Age: 48 Year
  Sex: Female

DRUGS (2)
  1. AMPYRA [Suspect]
     Indication: PRODUCT USED FOR UNKNOWN INDICATION
     Dosage: 10 MG, QD, ORAL
     Route: 048
     Dates: start: 20120516
  2. LEVOTHYROXINE SODIUM [Concomitant]

REACTIONS (6)
  - Dysstasia [None]
  - Joint lock [None]
  - Inappropriate schedule of drug administration [None]
  - Fall [None]
  - Temporomandibular joint syndrome [None]
  - Asthenia [None]
